FAERS Safety Report 12681903 (Version 1)
Quarter: 2016Q3

REPORT INFORMATION
  Report Type: Report from Study
  Country: US (occurrence: US)
  Receive Date: 20160824
  Receipt Date: 20160824
  Transmission Date: 20161109
  Serious: Yes (Hospitalization)
  Sender: FDA-Public Use
  Company Number: US-ACTELION-A-US2016-141004

PATIENT
  Age: 76 Year
  Sex: Female

DRUGS (16)
  1. LETAIRIS [Concomitant]
     Active Substance: AMBRISENTAN
  2. LASIX [Concomitant]
     Active Substance: FUROSEMIDE
  3. ACTIGALL [Concomitant]
     Active Substance: URSODIOL
  4. CALCIUM [Concomitant]
     Active Substance: CALCIUM
  5. FISH OIL [Concomitant]
     Active Substance: FISH OIL
  6. XALATAN [Concomitant]
     Active Substance: LATANOPROST
  7. DOXYCYCLINE. [Concomitant]
     Active Substance: DOXYCYCLINE
  8. EVOXAC [Concomitant]
     Active Substance: CEVIMELINE HYDROCHLORIDE
  9. UPTRAVI [Suspect]
     Active Substance: SELEXIPAG
     Indication: PULMONARY ARTERIAL HYPERTENSION
     Dosage: 200 MCG, BID
     Route: 048
     Dates: start: 20160714, end: 20160722
  10. GABAPENTIN. [Concomitant]
     Active Substance: GABAPENTIN
  11. SILDENAFIL. [Concomitant]
     Active Substance: SILDENAFIL
  12. SYNTHROID [Concomitant]
     Active Substance: LEVOTHYROXINE SODIUM
  13. ADVAIR HFA [Concomitant]
     Active Substance: FLUTICASONE PROPIONATE\SALMETEROL XINAFOATE
  14. FORTEO [Concomitant]
     Active Substance: TERIPARATIDE
  15. AZASITE [Concomitant]
     Active Substance: AZITHROMYCIN MONOHYDRATE
  16. PREMARIN [Concomitant]
     Active Substance: ESTROGENS, CONJUGATED

REACTIONS (2)
  - Diarrhoea [Unknown]
  - Pneumonia [Unknown]

NARRATIVE: CASE EVENT DATE: 20160722
